FAERS Safety Report 23305619 (Version 2)
Quarter: 2025Q3

REPORT INFORMATION
  Report Type: Report from Study
  Country: TW (occurrence: TW)
  Receive Date: 20231218
  Receipt Date: 20250902
  Transmission Date: 20251021
  Serious: Yes (Hospitalization, Other)
  Sender: BAXTER
  Company Number: TW-BAXTER-2023BAX037844

PATIENT
  Age: 31 Year
  Sex: Male
  Weight: 63.2 kg

DRUGS (13)
  1. CYCLOPHOSPHAMIDE [Suspect]
     Active Substance: CYCLOPHOSPHAMIDE
     Indication: Diffuse large B-cell lymphoma
     Dosage: 1297.5 MG, EVERY 3 WK
     Route: 042
     Dates: start: 20230914
  2. EPCORITAMAB [Suspect]
     Active Substance: EPCORITAMAB
     Indication: Diffuse large B-cell lymphoma
     Route: 058
     Dates: start: 20230914, end: 20230914
  3. EPCORITAMAB [Suspect]
     Active Substance: EPCORITAMAB
     Route: 058
     Dates: start: 20230921, end: 20230921
  4. EPCORITAMAB [Suspect]
     Active Substance: EPCORITAMAB
     Route: 058
     Dates: start: 20230928, end: 20230928
  5. EPCORITAMAB [Suspect]
     Active Substance: EPCORITAMAB
     Dosage: 48 MG, 1X A WEEK, C2, D1
     Route: 058
     Dates: start: 20231012, end: 20231012
  6. EPCORITAMAB [Suspect]
     Active Substance: EPCORITAMAB
     Dosage: 48 MG, 1X A WEEK, C2, D15
     Route: 058
     Dates: start: 20231026
  7. VINCRISTINE [Suspect]
     Active Substance: VINCRISTINE
     Indication: Diffuse large B-cell lymphoma
     Dosage: 2 MG, EVERY 3 WK
     Route: 042
     Dates: start: 20230914
  8. RITUXIMAB [Suspect]
     Active Substance: RITUXIMAB
     Indication: Diffuse large B-cell lymphoma
     Dosage: 648.75 MG, EVERY 3 WK
     Route: 042
     Dates: start: 20230914
  9. DOXORUBICIN [Suspect]
     Active Substance: DOXORUBICIN
     Indication: Diffuse large B-cell lymphoma
     Dosage: 86.55 MG, EVERY 3 WK
     Route: 042
     Dates: start: 20230914
  10. PREDNISONE [Suspect]
     Active Substance: PREDNISONE
     Indication: Diffuse large B-cell lymphoma
     Dosage: 100 MG, QD ( C1-6, DAY 1-5, EVERY 1 DAYS)
     Route: 048
     Dates: start: 20230914
  11. Bacide [Concomitant]
     Indication: Antifungal prophylaxis
     Route: 065
     Dates: start: 20231004
  12. VALTREX [Concomitant]
     Active Substance: VALACYCLOVIR HYDROCHLORIDE
     Indication: Prophylaxis
     Route: 065
     Dates: start: 20231012
  13. TRIAMCINOLONE [Concomitant]
     Active Substance: TRIAMCINOLONE
     Indication: Mouth ulceration
     Route: 065
     Dates: start: 20231004, end: 20231023

REACTIONS (3)
  - Blood fibrinogen decreased [Recovered/Resolved]
  - Neutropenia [Recovered/Resolved]
  - Vomiting [Recovered/Resolved]

NARRATIVE: CASE EVENT DATE: 20231017
